FAERS Safety Report 16154661 (Version 2)
Quarter: 2019Q2

REPORT INFORMATION
  Report Type: Spontaneous
  Country: CY (occurrence: CY)
  Receive Date: 20190403
  Receipt Date: 20190409
  Transmission Date: 20190711
  Serious: Yes (Death, Hospitalization)
  Sender: FDA-Public Use
  Company Number: CY-ELI_LILLY_AND_COMPANY-CY201904000591

PATIENT
  Age: 74 Year
  Sex: Male
  Weight: 61 kg

DRUGS (8)
  1. AVELUMAB [Suspect]
     Active Substance: AVELUMAB
     Indication: NON-SMALL CELL LUNG CANCER
     Dosage: 590 MG, ONCE WEEKLY
     Route: 042
     Dates: start: 20180731, end: 20180904
  2. POTASSIUM CHLORIDE. [Concomitant]
     Active Substance: POTASSIUM CHLORIDE
     Indication: HYPOKALAEMIA
     Dosage: 40 MG, 1X/DAY
     Route: 042
     Dates: start: 20180906, end: 20180906
  3. CARBOPLATIN. [Suspect]
     Active Substance: CARBOPLATIN
     Indication: NON-SMALL CELL LUNG CANCER
     Dosage: 370 MG, UNK
     Route: 042
     Dates: start: 20181102, end: 20181102
  4. AVELUMAB [Suspect]
     Active Substance: AVELUMAB
     Indication: NON-SMALL CELL LUNG CANCER
     Dosage: 590 MG, ONCE WEEKLY
     Route: 042
     Dates: end: 20180904
  5. POTASSIUM CHLORIDE. [Concomitant]
     Active Substance: POTASSIUM CHLORIDE
     Indication: HYPOKALAEMIA
     Dosage: 40 MG, UNK
     Route: 042
     Dates: start: 20180915, end: 20180915
  6. PEMETREXED. [Suspect]
     Active Substance: PEMETREXED
     Indication: NON-SMALL CELL LUNG CANCER
     Dosage: 575 MG, UNK
     Route: 042
     Dates: start: 20181102, end: 20181102
  7. AVELUMAB [Suspect]
     Active Substance: AVELUMAB
     Indication: NON-SMALL CELL LUNG CANCER
     Dosage: 590 MG, ONCE WEEKLY
     Route: 042
  8. POTASSIUM CHLORIDE. [Concomitant]
     Active Substance: POTASSIUM CHLORIDE
     Indication: HYPOKALAEMIA
     Dosage: 40 MG, 1X/DAY
     Route: 042
     Dates: start: 20180911, end: 20180911

REACTIONS (7)
  - Hypotension [Fatal]
  - Off label use [Unknown]
  - Blood creatinine increased [Fatal]
  - Platelet count decreased [Fatal]
  - Blood urea increased [Fatal]
  - Neutrophil count decreased [Fatal]
  - Neutropenic sepsis [Fatal]

NARRATIVE: CASE EVENT DATE: 20181109
